FAERS Safety Report 6639971-1 (Version None)
Quarter: 2010Q1

REPORT INFORMATION
  Report Type: 
  Country: None (occurrence: None)
  Receive Date: 20100318
  Receipt Date: 20100304
  Transmission Date: 20100710
  Serious: Yes (Hospitalization, Other)
  Sender: FDA-Public Use
  Company Number: PHHY2010VE16039

PATIENT
  Sex: Male

DRUGS (8)
  1. EXJADE [Suspect]
     Indication: IRON OVERLOAD
     Dosage: 750 MG, QD
  2. ZOMETA [Concomitant]
     Indication: BONE DISORDER
     Dosage: 4 MG, UNK
  3. FOLIC ACID [Concomitant]
     Dosage: 10 MG DAILY
     Route: 048
  4. PREDNISONE [Concomitant]
     Dosage: 15 MG, BID
     Route: 048
  5. VITAMIN B COMPLEX CAP [Concomitant]
     Route: 048
  6. ALDACTONE [Concomitant]
     Dosage: 25 MG (1/2 TABLET TWICE A DAY)
  7. LASIX [Concomitant]
     Dosage: 20 MG, QD
  8. CATAFLAM [Concomitant]
     Indication: PAIN
     Dosage: ONE SPOON OR 01 TABLET 150 MG PRN

REACTIONS (8)
  - ABASIA [None]
  - BONE DISORDER [None]
  - DEPRESSION [None]
  - DYSPNOEA [None]
  - LOWER LIMB FRACTURE [None]
  - MULTIPLE FRACTURES [None]
  - PNEUMONIA [None]
  - UPPER LIMB FRACTURE [None]
